FAERS Safety Report 5923037-X (Version None)
Quarter: 2008Q4

REPORT INFORMATION
  Report Type: 
  Country: None (occurrence: None)
  Receive Date: 20081018
  Receipt Date: 20081007
  Transmission Date: 20090506
  Serious: Yes (Other)
  Sender: FDA-Public Use
  Company Number: GB-PFIZER INC-2008076964

PATIENT
  Sex: Male

DRUGS (2)
  1. CHAMPIX [Suspect]
     Route: 048
  2. ALCOHOL [Suspect]

REACTIONS (5)
  - ABNORMAL BEHAVIOUR [None]
  - AGGRESSION [None]
  - MEMORY IMPAIRMENT [None]
  - PERSONALITY CHANGE [None]
  - PERSONALITY DISORDER [None]
